FAERS Safety Report 9057097 (Version 1)
Quarter: 2013Q1

REPORT INFORMATION
  Report Type: Report from Study
  Country: US (occurrence: US)
  Receive Date: 20130131
  Receipt Date: 20130131
  Transmission Date: 20140127
  Serious: No
  Sender: FDA-Public Use
  Company Number: US-ABBOTT-12P-163-0997035-00

PATIENT
  Age: 31 Year
  Sex: Male

DRUGS (1)
  1. HUMIRA [Suspect]
     Dates: start: 20120817

REACTIONS (3)
  - Wrong technique in drug usage process [Recovering/Resolving]
  - Injection site pain [Recovering/Resolving]
  - Injection site bruising [Recovering/Resolving]
